FAERS Safety Report 9470958 (Version 3)
Quarter: 2013Q3

REPORT INFORMATION
  Report Type: Spontaneous
  Country: AU (occurrence: AU)
  Receive Date: 20130822
  Receipt Date: 20130827
  Transmission Date: 20140515
  Serious: Yes (Death, Life-Threatening, Hospitalization, Other)
  Sender: FDA-Public Use
  Company Number: AU-COVIDIEN/TYCO HEALTHCARE/MALLINCKRODT-T201301065

PATIENT
  Age: 37 Year
  Sex: Male
  Weight: 80 kg

DRUGS (2)
  1. EXALGO EXTENDED RELEASE [Suspect]
     Indication: PAIN
     Dosage: 44 MG, 1 IN 1 DAY
     Route: 048
     Dates: start: 201301, end: 201302
  2. EXALGO EXTENDED RELEASE [Suspect]
     Indication: NECK PAIN

REACTIONS (9)
  - Suicidal ideation [Recovered/Resolved]
  - Depression [Unknown]
  - Mental disorder [Recovering/Resolving]
  - General physical health deterioration [Unknown]
  - Cardiac disorder [Unknown]
  - Arrhythmia [Unknown]
  - Feeling abnormal [Unknown]
  - Fall [Unknown]
  - Head injury [Unknown]
